FAERS Safety Report 24111106 (Version 1)
Quarter: 2024Q3

REPORT INFORMATION
  Report Type: Spontaneous
  Country: HR (occurrence: HR)
  Receive Date: 20240718
  Receipt Date: 20240718
  Transmission Date: 20241017
  Serious: Yes (Life-Threatening, Other)
  Sender: GLAXOSMITHKLINE
  Company Number: None

PATIENT

DRUGS (3)
  1. LAMICTAL [Suspect]
     Active Substance: LAMOTRIGINE
     Indication: Product used for unknown indication
     Dosage: 5600 MG, QD (56 TBL LAMICTAL OF 100 MG)
     Route: 048
     Dates: start: 20240624, end: 20240624
  2. LATUDA [Suspect]
     Active Substance: LURASIDONE HYDROCHLORIDE
     Indication: Product used for unknown indication
     Dosage: 1036 MG, QD (28 TBL OD 37 MG LATUDA)
     Route: 048
     Dates: start: 20240624, end: 20240624
  3. LYRICA [Suspect]
     Active Substance: PREGABALIN
     Indication: Product used for unknown indication
     Dosage: 1400 MG, QD (56 TBL OD 25 MG LYRICA)
     Route: 048
     Dates: start: 20240624, end: 20240624

REACTIONS (4)
  - Coma [Unknown]
  - Vomiting [Unknown]
  - Suicide attempt [Unknown]
  - Intentional overdose [Unknown]

NARRATIVE: CASE EVENT DATE: 20240624
